FAERS Safety Report 7251661-3 (Version None)
Quarter: 2011Q1

REPORT INFORMATION
  Report Type: 
  Country: None (occurrence: None)
  Receive Date: 20110128
  Receipt Date: 20110118
  Transmission Date: 20110831
  Serious: Yes (Disabling, Other)
  Sender: FDA-Public Use
  Company Number: US-BAYER-2011-002415

PATIENT
  Sex: Female

DRUGS (1)
  1. CIPRO [Suspect]
     Indication: URINARY TRACT INFECTION
     Dosage: 500 MG, BID
     Route: 048
     Dates: start: 20101224

REACTIONS (5)
  - IMPAIRED WORK ABILITY [None]
  - PAIN IN EXTREMITY [None]
  - MOBILITY DECREASED [None]
  - ARTHRALGIA [None]
  - URINARY RETENTION [None]
